FAERS Safety Report 14393101 (Version 2)
Quarter: 2018Q1

REPORT INFORMATION
  Report Type: Spontaneous
  Country: US (occurrence: US)
  Receive Date: 20180116
  Receipt Date: 20180221
  Transmission Date: 20180509
  Serious: Yes (Other)
  Sender: FDA-Public Use
  Company Number: US-JUBILANT CADISTA PHARMACEUTICALS-2017JUB00426

PATIENT
  Age: 61 Year
  Sex: Female
  Weight: 66.21 kg

DRUGS (8)
  1. ZOCOR [Suspect]
     Active Substance: SIMVASTATIN
     Dosage: UNK, UNK
     Dates: end: 20171218
  2. SUCRALFATE. [Concomitant]
     Active Substance: SUCRALFATE
     Dosage: 1 TABLETS, 4X/DAY
  3. LORAZEPAM. [Concomitant]
     Active Substance: LORAZEPAM
     Dosage: 0.5 MG, AS NEEDED
  4. PANTOPRAZOLE SODIUM. [Suspect]
     Active Substance: PANTOPRAZOLE SODIUM
     Indication: GASTROOESOPHAGEAL REFLUX DISEASE
     Dosage: 40 MG, 1X/DAY
     Route: 048
     Dates: start: 2017
  5. RANITIDINE. [Concomitant]
     Active Substance: RANITIDINE
     Dosage: UNK, 2X/DAY
  6. PANTOPRAZOLE SODIUM. [Suspect]
     Active Substance: PANTOPRAZOLE SODIUM
     Dosage: 40 MG, 1X/DAY
     Route: 048
     Dates: end: 20180103
  7. PANTOPRAZOLE SODIUM. [Suspect]
     Active Substance: PANTOPRAZOLE SODIUM
     Dosage: UNK
     Dates: start: 2000
  8. PANTOPRAZOLE SODIUM. [Suspect]
     Active Substance: PANTOPRAZOLE SODIUM
     Dosage: 40 MG, 1X/DAY
     Route: 048
     Dates: start: 20180115, end: 20180126

REACTIONS (13)
  - Rash [Recovered/Resolved]
  - Dyskinesia [Recovering/Resolving]
  - Blood magnesium decreased [Recovering/Resolving]
  - Anxiety [Recovering/Resolving]
  - Muscle spasms [Recovering/Resolving]
  - Tremor [Recovering/Resolving]
  - Lyme disease [Unknown]
  - Pruritus [Recovered/Resolved]
  - Arthropod bite [Unknown]
  - Arthralgia [Recovering/Resolving]
  - Feeling jittery [Recovering/Resolving]
  - Dry skin [Recovered/Resolved]
  - Decreased activity [Recovering/Resolving]

NARRATIVE: CASE EVENT DATE: 201712
